FAERS Safety Report 10141653 (Version 3)
Quarter: 2014Q4

REPORT INFORMATION
  Report Type: Report from Study
  Country: JP (occurrence: JP)
  Receive Date: 20140429
  Receipt Date: 20141126
  Transmission Date: 20150528
  Serious: Yes (Other)
  Sender: FDA-Public Use
  Company Number: JP-GILEAD-2013-0070266

PATIENT
  Age: 60 Year
  Sex: Female
  Weight: 41 kg

DRUGS (37)
  1. AMBRISENTAN [Suspect]
     Active Substance: AMBRISENTAN
     Indication: PULMONARY ARTERIAL HYPERTENSION
     Dosage: 5 MG, QD
     Route: 048
     Dates: start: 20101130
  2. AMBRISENTAN [Suspect]
     Active Substance: AMBRISENTAN
     Dosage: 2.5 MG, QD
     Route: 048
     Dates: start: 20101026, end: 20101129
  3. BAYASPIRIN [Concomitant]
     Active Substance: ASPIRIN
     Route: 048
     Dates: end: 20110425
  4. NITRODERM [Concomitant]
     Active Substance: NITROGLYCERIN
     Dosage: UNK
     Route: 062
     Dates: end: 20130219
  5. CRAVIT [Concomitant]
     Active Substance: LEVOFLOXACIN
     Dosage: UNK
     Route: 048
     Dates: start: 20110106, end: 20110117
  6. LIPITOR [Concomitant]
     Active Substance: ATORVASTATIN CALCIUM
     Dosage: UNK
     Route: 048
  7. CRAVIT [Concomitant]
     Active Substance: LEVOFLOXACIN
     Dosage: UNK
     Route: 048
     Dates: start: 20110729, end: 20110805
  8. MUCOSTA [Concomitant]
     Active Substance: REBAMIPIDE
     Indication: PROPHYLAXIS
     Dosage: UNK
     Route: 048
  9. PREDNISOLONE. [Concomitant]
     Active Substance: PREDNISOLONE
     Route: 065
  10. BARAMYCIN                          /00037701/ [Concomitant]
     Route: 050
     Dates: start: 20101027, end: 20110729
  11. JUVELA                             /00110502/ [Concomitant]
     Route: 061
     Dates: start: 20110328, end: 20110425
  12. THYRADIN [Concomitant]
     Active Substance: LEVOTHYROXINE
     Dosage: UNK
     Route: 048
  13. ALYPROST [Concomitant]
     Route: 051
  14. RINDERON VG [Concomitant]
     Active Substance: BETAMETHASONE VALERATE\GENTAMICIN SULFATE
     Route: 050
     Dates: end: 20101027
  15. CRAVIT [Concomitant]
     Active Substance: LEVOFLOXACIN
     Indication: PROPHYLAXIS
     Dosage: UNK
     Route: 048
     Dates: end: 20101031
  16. PARIET [Concomitant]
     Active Substance: RABEPRAZOLE SODIUM
     Route: 048
     Dates: start: 20110624
  17. PROGRAF [Concomitant]
     Active Substance: TACROLIMUS\TACROLIMUS ANHYDROUS
     Indication: PULMONARY ARTERIAL HYPERTENSION
     Route: 048
     Dates: start: 20130125
  18. CALONAL [Concomitant]
     Active Substance: ACETAMINOPHEN
     Dosage: UNK
     Dates: start: 20110523
  19. JANUVIA [Concomitant]
     Active Substance: SITAGLIPTIN PHOSPHATE
     Dosage: UNK
     Dates: start: 20110826
  20. ADALAT CC [Concomitant]
     Active Substance: NIFEDIPINE
     Indication: PULMONARY ARTERIAL HYPERTENSION
     Route: 048
     Dates: start: 20101028
  21. URSO [Concomitant]
     Active Substance: URSODIOL
     Route: 048
  22. BONALON [Concomitant]
     Active Substance: ALENDRONATE SODIUM
     Dosage: UNK
     Route: 048
     Dates: start: 20110623
  23. DIOVAN [Concomitant]
     Active Substance: VALSARTAN
     Dosage: UNK
     Route: 048
  24. INFLUENZA HA VACCINE [Concomitant]
     Active Substance: INFLUENZA VIRUS VACCINE
     Indication: PROPHYLAXIS
     Route: 051
     Dates: start: 20101104, end: 20101104
  25. OPALMON [Concomitant]
     Active Substance: LIMAPROST
     Indication: CYANOSIS
     Dosage: UNK
     Route: 048
     Dates: start: 20130220
  26. TALION                             /01587402/ [Concomitant]
     Active Substance: BEPOTASTINE
     Dosage: UNK
     Dates: start: 20101122, end: 20101203
  27. CADUET [Concomitant]
     Active Substance: AMLODIPINE BESYLATE\ATORVASTATIN CALCIUM
     Dosage: UNK
     Route: 048
     Dates: end: 20130219
  28. JUVELA N [Concomitant]
     Active Substance: TOCOPHERYL NICOTINATE, D-.ALPHA.
     Route: 048
     Dates: end: 20110509
  29. LOXOPROFEN [Concomitant]
     Active Substance: LOXOPROFEN
     Dosage: UNK
     Route: 048
  30. GENTACIN [Concomitant]
     Active Substance: GENTAMICIN SULFATE
     Route: 050
     Dates: start: 20110729
  31. LEVOTHYROXINE NA [Concomitant]
     Route: 048
  32. BIOFERMIN                          /00275501/ [Concomitant]
     Active Substance: BACILLUS SUBTILIS\LACTOBACILLUS ACIDOPHILUS\STREPTOCOCCUS FAECAIS
     Dosage: UNK
     Dates: start: 20100314, end: 20110322
  33. LIPLE [Concomitant]
  34. PROCYLIN [Concomitant]
     Active Substance: BERAPROST SODIUM
     Indication: PULMONARY ARTERIAL HYPERTENSION
     Dosage: UNK
     Route: 048
  35. NOVASTAN [Concomitant]
     Active Substance: ARGATROBAN
     Route: 041
  36. VITAMINS NOS [Concomitant]
     Active Substance: VITAMINS
     Indication: CYANOSIS
     Dosage: UNK
     Route: 048
     Dates: end: 20130219
  37. HIRUDOID                           /00723701/ [Concomitant]
     Route: 050
     Dates: start: 20110328, end: 20110425

REACTIONS (7)
  - Platelet count decreased [Recovering/Resolving]
  - Diabetes mellitus [Not Recovered/Not Resolved]
  - Oropharyngeal discomfort [Recovered/Resolved]
  - Enterocolitis [Recovered/Resolved]
  - Nasopharyngitis [Recovered/Resolved]
  - Mixed connective tissue disease [Not Recovered/Not Resolved]
  - Dermatitis contact [Recovered/Resolved]

NARRATIVE: CASE EVENT DATE: 20101120
